FAERS Safety Report 10262433 (Version 3)
Quarter: 2014Q3

REPORT INFORMATION
  Report Type: Spontaneous
  Country: SE (occurrence: SE)
  Receive Date: 20140626
  Receipt Date: 20140716
  Transmission Date: 20150326
  Serious: No
  Sender: FDA-Public Use
  Company Number: SE-ALLERGAN-1412139US

PATIENT
  Age: 68 Year
  Sex: Female

DRUGS (2)
  1. LUMIGAN [Suspect]
     Active Substance: BIMATOPROST
     Indication: GLAUCOMA
     Dosage: UNK
     Route: 047
     Dates: start: 201301
  2. SIMVASTATIN. [Interacting]
     Active Substance: SIMVASTATIN
     Indication: LIPIDS INCREASED
     Dosage: UNK
     Dates: start: 2005, end: 2014

REACTIONS (19)
  - Eyelid disorder [Unknown]
  - Asthenopia [Unknown]
  - Gait disturbance [Recovering/Resolving]
  - Pain in extremity [Recovering/Resolving]
  - Erythema [Unknown]
  - Iris hyperpigmentation [Unknown]
  - Growth of eyelashes [Unknown]
  - Musculoskeletal disorder [Recovering/Resolving]
  - Tension [Unknown]
  - Photophobia [Unknown]
  - Asthenopia [Recovering/Resolving]
  - Abnormal sensation in eye [Unknown]
  - Retinal haemorrhage [Unknown]
  - Paraesthesia [Recovering/Resolving]
  - Mental impairment [Unknown]
  - Skin atrophy [Unknown]
  - Asthenia [Recovering/Resolving]
  - Drug interaction [Unknown]
  - Foreign body sensation in eyes [Unknown]
